FAERS Safety Report 8778125 (Version 2)
Quarter: 2012Q4

REPORT INFORMATION
  Report Type: Report from Study
  Country: JP (occurrence: JP)
  Receive Date: 20120912
  Receipt Date: 20121003
  Transmission Date: 20130627
  Serious: Yes (Hospitalization, Other)
  Sender: FDA-Public Use
  Company Number: JP-TEVA-2011002513

PATIENT
  Age: 68 Year
  Sex: Male
  Weight: 60.4 kg

DRUGS (13)
  1. BENDAMUSTINE HCL [Suspect]
     Indication: MANTLE CELL LYMPHOMA
     Dosage: 120 mg/m2 Daily;
     Route: 042
     Dates: start: 20110215, end: 20110216
  2. BENDAMUSTINE HCL [Suspect]
     Dosage: 120 mg/m2 Daily;
     Route: 042
     Dates: start: 20110308, end: 20110309
  3. BENDAMUSTINE HCL [Suspect]
     Dosage: 90 mg/m2 Daily;
     Route: 042
     Dates: start: 20110405, end: 20110406
  4. BENDAMUSTINE HCL [Suspect]
     Dosage: 90 mg/m2 Daily;
     Route: 042
     Dates: start: 20110427, end: 20110428
  5. BENDAMUSTINE HCL [Suspect]
     Dosage: 90 mg/m2 Daily;
     Route: 042
     Dates: start: 20120412, end: 20120413
  6. BENDAMUSTINE HCL [Suspect]
     Dosage: 90 mg/m2 Daily;
     Route: 042
     Dates: start: 20120510, end: 20120511
  7. BENDAMUSTINE HCL [Suspect]
     Dosage: 90 mg/m2 Daily;
     Route: 042
     Dates: start: 20120531, end: 20120601
  8. BROTIZOLAM [Concomitant]
  9. RAMOSETRON HYDROCHLORIDE [Concomitant]
     Dates: start: 20110215, end: 20110406
  10. SODIUM PICOSULFATE [Concomitant]
  11. MAGNESIUM OXIDE [Concomitant]
  12. FLUCONAZOLE [Concomitant]
     Dates: start: 20110524
  13. LACTOMIN [Concomitant]
     Dates: start: 20110516, end: 20110520

REACTIONS (3)
  - Pneumonia cytomegaloviral [Recovered/Resolved]
  - Pneumocystis jiroveci pneumonia [Recovering/Resolving]
  - Aplasia pure red cell [Not Recovered/Not Resolved]
